FAERS Safety Report 7871214-3 (Version None)
Quarter: 2011Q4

REPORT INFORMATION
  Report Type: 
  Country: None (occurrence: None)
  Receive Date: 20111027
  Receipt Date: 20111017
  Transmission Date: 20120403
  Serious: Yes (Disabling)
  Sender: FDA-Public Use
  Company Number: JP-2011-11401

PATIENT
  Age: 77 Year
  Sex: Male
  Weight: 56 kg

DRUGS (8)
  1. DORMICUM (MIDAZOLAM)INJECTION [Concomitant]
  2. PLAVIX [Suspect]
     Indication: THROMBOSIS PROPHYLAXIS
     Dosage: 75 MG MILLIGRAM(S), QD, ORAL
     Route: 048
     Dates: start: 20110809
  3. ASPIRIN [Concomitant]
  4. CONCENTRATED RED CELLS (CONCENTRATED HUMAN RED BLOOD CELLS) [Concomitant]
  5. SAMSCA [Suspect]
     Indication: DIURETIC THERAPY
     Dosage: 15 MG MILLIGRAM(S), QD, ORAL
     Route: 048
     Dates: start: 20110810, end: 20110816
  6. FINIBAX (DORIPENEM)INJECTION [Suspect]
     Indication: PNEUMONIA
     Dosage: 0.25 G GRAM(S), TID, INTRAVENOUS
     Route: 042
     Dates: start: 20110810, end: 20110827
  7. LASIX [Concomitant]
  8. TRICHLORMETHIAZIDE [Concomitant]

REACTIONS (2)
  - INTERSTITIAL LUNG DISEASE [None]
  - PULMONARY ALVEOLAR HAEMORRHAGE [None]
